FAERS Safety Report 14874892 (Version 2)
Quarter: 2018Q3

REPORT INFORMATION
  Report Type: Spontaneous
  Country: CN (occurrence: CN)
  Receive Date: 20180510
  Receipt Date: 20180807
  Transmission Date: 20181010
  Serious: Yes (Other)
  Sender: FDA-Public Use
  Company Number: CN-SA-2018SA125819

PATIENT
  Sex: Female
  Weight: 57 kg

DRUGS (3)
  1. CLEXANE [Suspect]
     Active Substance: ENOXAPARIN SODIUM
     Indication: AZOTAEMIA
     Dosage: .4 ML,QD
     Dates: start: 20180425, end: 20180501
  2. RECOMBINANT HUMAN ERYTHROPOIETIN [Concomitant]
     Active Substance: ERYTHROPOIETIN
     Indication: ANAEMIA
     Dosage: .3 ML,QD
     Route: 058
     Dates: start: 201604
  3. L CARNITINE [LEVOCARNITINE] [Concomitant]
     Indication: CARDIAC FAILURE
     Dosage: 1 G,QD
     Route: 058
     Dates: start: 201604

REACTIONS (2)
  - Product quality issue [Unknown]
  - Coagulopathy [Recovered/Resolved]

NARRATIVE: CASE EVENT DATE: 20180428
